FAERS Safety Report 10045259 (Version 3)
Quarter: 2014Q2

REPORT INFORMATION
  Report Type: Spontaneous
  Country: US (occurrence: US)
  Receive Date: 20140328
  Receipt Date: 20140527
  Transmission Date: 20141212
  Serious: Yes (Other)
  Sender: FDA-Public Use
  Company Number: US-ENDO PHARMACEUTICALS INC.-MONT20140003

PATIENT
  Age: 63 Year
  Sex: Female
  Weight: 75.82 kg

DRUGS (5)
  1. MONTELUKAST SODIUM TABLETS 10MG [Suspect]
     Indication: ASTHMA
     Route: 048
     Dates: end: 2014
  2. MONTELUKAST SODIUM TABLETS 10MG [Suspect]
     Indication: NASAL POLYPS
     Route: 048
     Dates: start: 2014
  3. ADVAIR [Concomitant]
     Indication: ASTHMA
     Dosage: 500/100 MG
  4. SINGULAIR [Concomitant]
     Indication: ASTHMA
     Route: 048
     Dates: start: 2004
  5. SINGULAIR [Concomitant]
     Indication: NASAL POLYPS

REACTIONS (4)
  - Dyspnoea [Recovered/Resolved]
  - Asthma [Recovered/Resolved]
  - Upper respiratory tract infection [Recovered/Resolved]
  - Drug ineffective [Recovered/Resolved]
